FAERS Safety Report 10050733 (Version 1)
Quarter: 2014Q2

REPORT INFORMATION
  Report Type: Spontaneous
  Country: US (occurrence: US)
  Receive Date: 20140401
  Receipt Date: 20140401
  Transmission Date: 20141212
  Serious: No
  Sender: FDA-Public Use
  Company Number: US-ASTRAZENECA-2013SE74568

PATIENT
  Age: 19 Year
  Sex: Male
  Weight: 54.4 kg

DRUGS (6)
  1. NEXIUM [Suspect]
     Route: 048
  2. PRILOSEC [Suspect]
     Route: 048
  3. HUMIRA [Concomitant]
     Indication: CROHN^S DISEASE
     Dosage: 1 IN 2 WEEKS
     Route: 058
     Dates: start: 201204, end: 201301
  4. HUMIRA [Concomitant]
     Indication: CROHN^S DISEASE
     Dosage: 1 IN 1 WEEKS
     Route: 058
     Dates: start: 201301, end: 201301
  5. PREVACID [Concomitant]
     Indication: GASTROOESOPHAGEAL REFLUX DISEASE
  6. TRAVATAN Z [Concomitant]
     Indication: GLAUCOMA

REACTIONS (3)
  - Drug hypersensitivity [Unknown]
  - Rash [Unknown]
  - Urticaria [Unknown]
